FAERS Safety Report 25292509 (Version 1)
Quarter: 2025Q2

REPORT INFORMATION
  Report Type: Spontaneous
  Country: US (occurrence: US)
  Receive Date: 20250510
  Receipt Date: 20250510
  Transmission Date: 20250716
  Serious: No
  Sender: SANOFI AVENTIS
  Company Number: US-SA-2025SA124020

PATIENT
  Age: 58 Year
  Sex: Female

DRUGS (8)
  1. DUPIXENT [Suspect]
     Active Substance: DUPILUMAB
     Indication: Dermatitis atopic
     Route: 058
     Dates: start: 20230404
  2. METFORMIN [Concomitant]
     Active Substance: METFORMIN HYDROCHLORIDE
  3. CLOBETASOL [Concomitant]
     Active Substance: CLOBETASOL
  4. TRIAMTERENE [Concomitant]
     Active Substance: TRIAMTERENE
  5. DICLOFENAC [Concomitant]
     Active Substance: DICLOFENAC
  6. PREGABALIN [Concomitant]
     Active Substance: PREGABALIN
  7. CALCIUM [Concomitant]
     Active Substance: CALCIUM
  8. PREDNISONE [Concomitant]
     Active Substance: PREDNISONE

REACTIONS (2)
  - Glossodynia [Not Recovered/Not Resolved]
  - Pharyngeal swelling [Not Recovered/Not Resolved]

NARRATIVE: CASE EVENT DATE: 20250301
